FAERS Safety Report 24307693 (Version 1)
Quarter: 2024Q3

REPORT INFORMATION
  Report Type: Spontaneous
  Country: IT (occurrence: IT)
  Receive Date: 20240911
  Receipt Date: 20240911
  Transmission Date: 20241017
  Serious: Yes (Hospitalization)
  Sender: MYLAN
  Company Number: None

PATIENT
  Age: 23 Year
  Sex: Female

DRUGS (6)
  1. TALOFEN [Suspect]
     Active Substance: PROMAZINE HYDROCHLORIDE
     Indication: Product used for unknown indication
     Dosage: UNK, THE PATIENT DOES NOT REMEMBER THE QUANTITY OF DOSAGE UNITS TAKEN
     Route: 048
     Dates: start: 20240829
  2. LORAZEPAM [Suspect]
     Active Substance: LORAZEPAM
     Indication: Product used for unknown indication
     Dosage: UNK, THE PATIENT DOES NOT REMEMBER THE QUANTITY OF DOSAGE UNITS TAKEN
     Route: 048
     Dates: start: 20240829
  3. VENLAFAXINE [Suspect]
     Active Substance: VENLAFAXINE HYDROCHLORIDE
     Indication: Product used for unknown indication
     Dosage: UNK, THE PATIENT DOES NOT REMEMBER THE QUANTITY OF DOSAGE UNITS TAKEN (PACKAGE OF 150 MG/TABLETS)
     Route: 048
     Dates: start: 20240829
  4. ARIPIPRAZOLE [Suspect]
     Active Substance: ARIPIPRAZOLE
     Indication: Product used for unknown indication
     Dosage: UNK, THE PATIENT DOES NOT REMEMBER THE QUANTITY OF DOSAGE UNITS TAKEN
     Route: 048
     Dates: start: 20240829
  5. VALIUM [Suspect]
     Active Substance: DIAZEPAM
     Indication: Product used for unknown indication
     Dosage: 10 DROPS
     Route: 048
     Dates: start: 20240829
  6. AUGMENTIN [Concomitant]
     Active Substance: AMOXICILLIN\CLAVULANATE POTASSIUM
     Indication: Tonsillitis
     Dosage: 2 DOSAGE FORM, 2 TABLET
     Route: 065
     Dates: start: 20240828

REACTIONS (5)
  - Intentional self-injury [Recovered/Resolved]
  - Sopor [Recovered/Resolved]
  - Depressed mood [Recovering/Resolving]
  - Apathy [Recovering/Resolving]
  - Intentional product misuse [Unknown]

NARRATIVE: CASE EVENT DATE: 20240829
